FAERS Safety Report 20889078 (Version 2)
Quarter: 2022Q3

REPORT INFORMATION
  Report Type: Spontaneous
  Country: CA (occurrence: CA)
  Receive Date: 20220530
  Receipt Date: 20220708
  Transmission Date: 20221027
  Serious: Yes (Congenital Anomaly, Other)
  Sender: FDA-Public Use
  Company Number: CA-CELLTRION INC.-2022CA008146

PATIENT

DRUGS (4)
  1. INFLECTRA [Suspect]
     Active Substance: INFLIXIMAB-DYYB
     Dosage: 600 MG, Q 0 , 2, 6 WEEK THEN EVERY 8 WEEKS
     Route: 064
     Dates: start: 20211105, end: 20211224
  2. INFLECTRA [Suspect]
     Active Substance: INFLIXIMAB-DYYB
     Dosage: 600 MG, EVERY 4 WEEK
     Route: 064
     Dates: start: 20220131
  3. MESALAMINE [Concomitant]
     Active Substance: MESALAMINE
     Dosage: UNK
     Route: 064
  4. PREDNISONE [Concomitant]
     Active Substance: PREDNISONE
     Dosage: 20 MG FOR 3 MONTHS
     Route: 064

REACTIONS (3)
  - Spina bifida [Not Recovered/Not Resolved]
  - Tethered cord syndrome [Not Recovered/Not Resolved]
  - Maternal exposure during pregnancy [Unknown]
